FAERS Safety Report 26155096 (Version 1)
Quarter: 2025Q4

REPORT INFORMATION
  Report Type: Spontaneous
  Country: US (occurrence: US)
  Receive Date: 20251215
  Receipt Date: 20251215
  Transmission Date: 20260118
  Serious: Yes (Other)
  Sender: STRIDES
  Company Number: US-STRIDES ARCOLAB LIMITED-2025SP011579

PATIENT
  Age: 14 Year
  Sex: Female

DRUGS (16)
  1. MYCOPHENOLATE MOFETIL [Suspect]
     Active Substance: MYCOPHENOLATE MOFETIL
     Indication: Type I hypersensitivity
     Dosage: UNK
     Route: 065
  2. MYCOPHENOLATE MOFETIL [Suspect]
     Active Substance: MYCOPHENOLATE MOFETIL
     Indication: Type IV hypersensitivity reaction
  3. DAPSONE [Suspect]
     Active Substance: DAPSONE
     Indication: Type I hypersensitivity
     Dosage: UNK
     Route: 065
  4. DAPSONE [Suspect]
     Active Substance: DAPSONE
     Indication: Type IV hypersensitivity reaction
  5. UPADACITINIB [Suspect]
     Active Substance: UPADACITINIB
     Indication: Type I hypersensitivity
     Dosage: UNK
     Route: 065
  6. UPADACITINIB [Suspect]
     Active Substance: UPADACITINIB
     Indication: Type IV hypersensitivity reaction
  7. PLAQUENIL [Suspect]
     Active Substance: HYDROXYCHLOROQUINE SULFATE
     Indication: Type I hypersensitivity
     Dosage: UNK
     Route: 065
  8. PLAQUENIL [Suspect]
     Active Substance: HYDROXYCHLOROQUINE SULFATE
     Indication: Type IV hypersensitivity reaction
  9. CYCLOSPORINE [Suspect]
     Active Substance: CYCLOSPORINE
     Indication: Type I hypersensitivity
     Dosage: UNK
     Route: 065
  10. CYCLOSPORINE [Suspect]
     Active Substance: CYCLOSPORINE
     Indication: Type IV hypersensitivity reaction
  11. OMALIZUMAB [Concomitant]
     Active Substance: OMALIZUMAB
     Indication: Type I hypersensitivity
     Dosage: 600 MILLIGRAM ONCE EVERY 2 WEEKS
     Route: 065
  12. OMALIZUMAB [Concomitant]
     Active Substance: OMALIZUMAB
     Indication: Type IV hypersensitivity reaction
  13. Duplilumab [Concomitant]
     Indication: Type I hypersensitivity
     Dosage: 300 MILLIGRAM, ONCE A WEEK
     Route: 065
  14. Duplilumab [Concomitant]
     Indication: Type IV hypersensitivity reaction
  15. TEZEPELUMAB [Concomitant]
     Active Substance: TEZEPELUMAB
     Indication: Type I hypersensitivity
     Dosage: UNK
     Route: 065
  16. TEZEPELUMAB [Concomitant]
     Active Substance: TEZEPELUMAB
     Indication: Type IV hypersensitivity reaction

REACTIONS (1)
  - Drug ineffective for unapproved indication [Unknown]
